FAERS Safety Report 13358236 (Version 1)
Quarter: 2017Q1

REPORT INFORMATION
  Report Type: Spontaneous
  Country: FR (occurrence: FR)
  Receive Date: 20170322
  Receipt Date: 20170322
  Transmission Date: 20170429
  Serious: Yes (Other)
  Sender: FDA-Public Use
  Company Number: FR-TEVA-749788ROM

PATIENT
  Sex: Male

DRUGS (1)
  1. FUROSEMIDE TEVA 500 MG [Suspect]
     Active Substance: FUROSEMIDE
     Dosage: .25 DOSAGE FORMS DAILY;
     Route: 048

REACTIONS (4)
  - Paraesthesia [Unknown]
  - Haematochezia [Unknown]
  - Burning sensation [Unknown]
  - Wrong technique in product usage process [Unknown]
